FAERS Safety Report 8418673-5 (Version None)
Quarter: 2012Q2

REPORT INFORMATION
  Report Type: 
  Country: None (occurrence: None)
  Receive Date: 20120531
  Receipt Date: 20120522
  Transmission Date: 20120825
  Serious: Yes (Other)
  Sender: FDA-Public Use
  Company Number: 217621

PATIENT
  Age: 55 Year
  Sex: Female

DRUGS (5)
  1. CALCIPOTRIENE AND BETAMETHASONE DIPROPIONATE [Suspect]
     Indication: PSORIASIS
     Dosage: TOPICAL
     Route: 061
  2. ENBREL [Suspect]
     Indication: PSORIASIS
     Dosage: 2 IN 1 WK, SUBCUTANEOUS
     Route: 058
     Dates: start: 20110913, end: 20111115
  3. CLOBEX [Suspect]
     Indication: PSORIASIS
     Dosage: TOPICAL
     Route: 061
  4. POTASSIUM CHLORIDE [Suspect]
     Indication: PRODUCT USED FOR UNKNOWN INDICATION
     Dosage: 1 DF,  ORAL
     Route: 048
  5. PREDNISONE [Suspect]
     Indication: PRODUCT USED FOR UNKNOWN INDICATION
     Dosage: 1 DF, ORAL
     Route: 048

REACTIONS (2)
  - DRUG INEFFECTIVE [None]
  - HAEMATOMA [None]
